FAERS Safety Report 23696036 (Version 11)
Quarter: 2024Q3

REPORT INFORMATION
  Report Type: Spontaneous
  Country: JP (occurrence: JP)
  Receive Date: 20240402
  Receipt Date: 20240919
  Transmission Date: 20241016
  Serious: Yes (Life-Threatening, Hospitalization, Other)
  Sender: AMGEN
  Company Number: JP-KYOWAKIRIN-2024KK006087

PATIENT
  Age: 65 Year
  Sex: Male

DRUGS (95)
  1. DARBEPOETIN ALFA [Suspect]
     Active Substance: DARBEPOETIN ALFA
     Indication: Nephrogenic anaemia
     Dosage: UNK
     Route: 010
     Dates: start: 202104
  2. DARBEPOETIN ALFA [Suspect]
     Active Substance: DARBEPOETIN ALFA
     Dosage: 30 MICROGRAM, QWK
     Route: 010
     Dates: start: 202311
  3. DARBEPOETIN ALFA [Suspect]
     Active Substance: DARBEPOETIN ALFA
     Dosage: UNK
     Route: 010
     Dates: start: 202104
  4. DARBEPOETIN ALFA [Suspect]
     Active Substance: DARBEPOETIN ALFA
     Dosage: 60 MICROGRAM
     Route: 010
     Dates: start: 20230513
  5. DARBEPOETIN ALFA [Suspect]
     Active Substance: DARBEPOETIN ALFA
     Dosage: 60 MICROGRAM, QWK
     Route: 010
     Dates: start: 202311
  6. DARBEPOETIN ALFA [Suspect]
     Active Substance: DARBEPOETIN ALFA
     Dosage: 30 MICROGRAM, QWK
     Route: 010
     Dates: start: 202312
  7. DARBEPOETIN ALFA [Suspect]
     Active Substance: DARBEPOETIN ALFA
     Dosage: 60 MICROGRAM, QWK
     Route: 010
     Dates: start: 202312
  8. DAPRODUSTAT [Suspect]
     Active Substance: DAPRODUSTAT
     Indication: Nephrogenic anaemia
     Dosage: 4 MG, QD, AFTER DINNER
     Route: 048
     Dates: start: 20240111, end: 20240205
  9. DAPRODUSTAT [Suspect]
     Active Substance: DAPRODUSTAT
     Dosage: 8 MG, QD
     Route: 048
     Dates: start: 20240206, end: 20240219
  10. DAPRODUSTAT [Suspect]
     Active Substance: DAPRODUSTAT
     Dosage: 16 MG, QD
     Route: 048
     Dates: start: 20240220, end: 20240304
  11. DAPRODUSTAT [Suspect]
     Active Substance: DAPRODUSTAT
     Dosage: 24 MG, QD, AFTER DINNER
     Route: 048
     Dates: start: 20240305, end: 20240520
  12. ROXADUSTAT [Concomitant]
     Active Substance: ROXADUSTAT
     Indication: Nephrogenic anaemia
     Dosage: 120 MILLIGRAM, 3 TIMES/WK
     Route: 048
     Dates: start: 202104, end: 202301
  13. ROXADUSTAT [Concomitant]
     Active Substance: ROXADUSTAT
     Dosage: 120 MILLIGRAM, 3 TIMES/WK
     Route: 048
     Dates: start: 20230221
  14. BISOPROLOL FUMARATE [Concomitant]
     Active Substance: BISOPROLOL FUMARATE
     Indication: Product used for unknown indication
     Dosage: 1 DF, QD, AFTER LUNCH
     Route: 048
     Dates: start: 20240306, end: 20240307
  15. BISOPROLOL FUMARATE [Concomitant]
     Active Substance: BISOPROLOL FUMARATE
     Dosage: 1 DF, QD, AFTER BREAKFAST
     Route: 048
     Dates: start: 20240308, end: 20240330
  16. BISOPROLOL FUMARATE [Concomitant]
     Active Substance: BISOPROLOL FUMARATE
     Dosage: 1 DOSAGE FORM, QD
     Route: 048
     Dates: start: 202308, end: 202407
  17. P TOL [Concomitant]
     Indication: Product used for unknown indication
     Dosage: 2 DF, TID., IMMEDIATELY BEFORE BREAKFAST, LUNCH AND DINNER
     Route: 048
     Dates: start: 20240311, end: 20240315
  18. P TOL [Concomitant]
     Dosage: 1 DF, TID, IMMEDIATELY BEFORE BREAKFAST, LUNCH AND DINNER
     Route: 048
     Dates: start: 20240316, end: 20240329
  19. P TOL [Concomitant]
     Dosage: 1 DF, BID, IMMEDIATELY BEFORE BREAKFAST AND LUNCH
     Route: 048
     Dates: start: 20240330, end: 20240330
  20. P TOL [Concomitant]
     Dosage: 2 DF, BID, IMMEDIATELY BEFORE BREAKFAST AND LUNCH
     Route: 048
     Dates: start: 202308, end: 202308
  21. P TOL [Concomitant]
     Dosage: 1 DF, BID, IMMEDIATELY BEFORE BREAKFAST AND LUNCH
     Route: 048
     Dates: start: 202308, end: 202308
  22. P TOL [Concomitant]
     Dosage: 2 DF, BID, IMMEDIATELY BEFORE BREAKFAST AND LUNCH
     Route: 048
     Dates: start: 202308, end: 202308
  23. P TOL [Concomitant]
     Dosage: 1 DF, BID, IMMEDIATELY BEFORE BREAKFAST AND LUNCH
     Route: 048
     Dates: start: 20240330, end: 20240330
  24. POLAPREZINC [Concomitant]
     Active Substance: POLAPREZINC
     Indication: Product used for unknown indication
     Dosage: 1 DF, QD, AFTER LUNCH
     Route: 048
     Dates: start: 20240330, end: 20240330
  25. POLAPREZINC [Concomitant]
     Active Substance: POLAPREZINC
     Dosage: 1 DF, BID, AFTER LUNCH AND BEFORE BEDTIME
     Route: 048
     Dates: start: 20240306, end: 20240329
  26. POLAPREZINC [Concomitant]
     Active Substance: POLAPREZINC
     Dosage: 1 DF, BID, AFTER LUNCH AND BEFORE BEDTIME
     Route: 048
     Dates: start: 202406, end: 202407
  27. DIETARY SUPPLEMENT\PROBIOTICS [Concomitant]
     Active Substance: DIETARY SUPPLEMENT\PROBIOTICS NOS
     Indication: Product used for unknown indication
     Dosage: 1 DF, TID, AFTER BREAKFAST, LUNCH AND DINNER
     Route: 048
     Dates: start: 20240311, end: 20240321
  28. DIETARY SUPPLEMENT\PROBIOTICS [Concomitant]
     Active Substance: DIETARY SUPPLEMENT\PROBIOTICS NOS
     Dosage: 1 DF, TID, AFTER BREAKFAST, LUNCH AND DINNER
     Route: 048
     Dates: start: 202308, end: 202407
  29. DIETARY SUPPLEMENT\PROBIOTICS [Concomitant]
     Active Substance: DIETARY SUPPLEMENT\PROBIOTICS NOS
     Dosage: 1 DF, TID, AFTER BREAKFAST, LUNCH AND DINNER
     Route: 048
     Dates: start: 20240322, end: 20240329
  30. DIETARY SUPPLEMENT\PROBIOTICS [Concomitant]
     Active Substance: DIETARY SUPPLEMENT\PROBIOTICS NOS
     Dosage: 1 GRAM, BID (1 G, BID, AFTER BREAKFAST AND LUNCH  )
     Route: 048
     Dates: start: 20240330, end: 20240330
  31. DIETARY SUPPLEMENT\PROBIOTICS [Concomitant]
     Active Substance: DIETARY SUPPLEMENT\PROBIOTICS NOS
     Dosage: 1 GRAM, TID, AFTER EVERY MEALS
     Route: 048
     Dates: start: 202310, end: 202310
  32. NEXIUM [Concomitant]
     Active Substance: ESOMEPRAZOLE MAGNESIUM
     Indication: Product used for unknown indication
     Dosage: 1 DF, QD, AFTER BREAKFAST
     Route: 048
     Dates: start: 20240306, end: 20240330
  33. NEXIUM [Concomitant]
     Active Substance: ESOMEPRAZOLE MAGNESIUM
     Dosage: 1 DF, QD, AFTER BREAKFAST
     Route: 048
     Dates: start: 202308, end: 202403
  34. NEXIUM [Concomitant]
     Active Substance: ESOMEPRAZOLE MAGNESIUM
     Dosage: 1 DF, QD, AFTER BREAKFAST
     Route: 048
     Dates: start: 202403, end: 202407
  35. FOLIC ACID [Concomitant]
     Active Substance: FOLIC ACID
     Indication: Product used for unknown indication
     Dosage: 2 DF, QD, AFTER LUNCH
     Route: 048
     Dates: start: 20240306, end: 20240330
  36. FOLIC ACID [Concomitant]
     Active Substance: FOLIC ACID
     Dosage: 2 DF, QD, AFTER LUNCH
     Route: 048
     Dates: start: 202308, end: 202403
  37. FOLIC ACID [Concomitant]
     Active Substance: FOLIC ACID
     Dosage: 2 DF, QD, AFTER LUNCH
     Route: 048
     Dates: start: 202404, end: 202407
  38. METHYLCOBALAMIN [Concomitant]
     Active Substance: METHYLCOBALAMIN
     Indication: Product used for unknown indication
     Dosage: 1 DF, BID, AFTER BREAKFAST AND LUNCH
     Route: 048
     Dates: start: 20240330, end: 20240330
  39. METHYLCOBALAMIN [Concomitant]
     Active Substance: METHYLCOBALAMIN
     Dosage: 1 DF, TID, AFTER BREAKFAST, LUNCH AND DINNER
     Route: 048
     Dates: start: 20240306, end: 20240329
  40. METHYLCOBALAMIN [Concomitant]
     Active Substance: METHYLCOBALAMIN
     Dosage: 1 DF, TID, AFTER EVERY MEAL
     Route: 048
     Dates: start: 202308, end: 202403
  41. METHYLCOBALAMIN [Concomitant]
     Active Substance: METHYLCOBALAMIN
     Dosage: 1 DF, TID, AFTER EVERY MEAL
     Route: 048
     Dates: start: 202404, end: 202407
  42. ASPIRIN [Concomitant]
     Active Substance: ASPIRIN
     Indication: Product used for unknown indication
     Dosage: 1 DF, QD, AFTER BREAKFAST
     Route: 048
     Dates: start: 20240306, end: 20240330
  43. ASPIRIN [Concomitant]
     Active Substance: ASPIRIN
     Dosage: 1 DF, QD, AFTER BREAKFAST
     Route: 048
     Dates: start: 202308, end: 202406
  44. ASPIRIN [Concomitant]
     Active Substance: ASPIRIN
     Dosage: 1 DF, QD, AFTER BREAKFAST
     Route: 048
     Dates: start: 202406, end: 202407
  45. ZINC [Concomitant]
     Active Substance: ZINC
     Indication: Product used for unknown indication
     Dosage: 25 MG, BID, AFTER BREAKFAST AND DINNER
     Route: 048
     Dates: start: 20240306, end: 20240329
  46. ZINC [Concomitant]
     Active Substance: ZINC
     Dosage: 25 MG, QD, AFTER BREAKFAST
     Route: 048
     Dates: start: 20240330, end: 20240330
  47. ZINC [Concomitant]
     Active Substance: ZINC
     Dosage: 25 MG, BID, AFTER BREAKFAST AND DINNER
     Route: 048
     Dates: start: 202402, end: 202403
  48. ZINC [Concomitant]
     Active Substance: ZINC
     Dosage: 25 MG, BID, AFTER BREAKFAST AND DINNER
     Route: 048
     Dates: start: 202404, end: 202407
  49. AMOXICILLIN [Concomitant]
     Active Substance: AMOXICILLIN
     Indication: Product used for unknown indication
     Dosage: 1 DF, QD, AFTER DINNER
     Route: 048
     Dates: start: 20240306, end: 20240306
  50. AMOXICILLIN [Concomitant]
     Active Substance: AMOXICILLIN
     Dosage: 1 DF, TID, AFTER BREAKFAST, LUNCH AND DINNER
     Route: 048
     Dates: start: 20240307, end: 20240309
  51. AMOXICILLIN [Concomitant]
     Active Substance: AMOXICILLIN
     Dosage: 1 DF, BID, AFTER BREAKFAST AND LUNCH
     Route: 048
     Dates: start: 20240310, end: 20240310
  52. AMOXICILLIN [Concomitant]
     Active Substance: AMOXICILLIN
     Dosage: 1 DF, BID, BEFORE BREAKFAST AND DINNER
     Route: 048
     Dates: start: 202308, end: 202308
  53. GLYCOSAMINOGLYCANS [Concomitant]
     Active Substance: GLYCOSAMINOGLYCANS
     Indication: Product used for unknown indication
     Dosage: 2 TUBES DAILY (25G/TUBE), BID
     Route: 065
     Dates: start: 20240311
  54. GLYCOSAMINOGLYCANS [Concomitant]
     Active Substance: GLYCOSAMINOGLYCANS
     Dosage: 2 TUBES DAILY (25G/TUBE), BID
     Route: 065
     Dates: start: 20240313
  55. GLYCOSAMINOGLYCANS [Concomitant]
     Active Substance: GLYCOSAMINOGLYCANS
     Dosage: 3 TUBES DAILY (25G/TUBE), BID
     Route: 065
     Dates: start: 20240316
  56. GLYCOSAMINOGLYCANS [Concomitant]
     Active Substance: GLYCOSAMINOGLYCANS
     Dosage: 10 TUBES DAILY (25G/TUBE), BID
     Route: 065
     Dates: start: 20240327
  57. GLYCOSAMINOGLYCANS [Concomitant]
     Active Substance: GLYCOSAMINOGLYCANS
     Dosage: 100 G,1-3 TIMES A DAY
     Route: 065
     Dates: start: 202404, end: 202404
  58. GLYCOSAMINOGLYCANS [Concomitant]
     Active Substance: GLYCOSAMINOGLYCANS
     Dosage: 125 G,1-3 TIMES A DAY
     Route: 065
     Dates: start: 202405, end: 202405
  59. GLYCOSAMINOGLYCANS [Concomitant]
     Active Substance: GLYCOSAMINOGLYCANS
     Dosage: 100 G,1-3 TIMES A DAY
     Route: 065
     Dates: start: 202406, end: 202406
  60. GLYCOSAMINOGLYCANS [Concomitant]
     Active Substance: GLYCOSAMINOGLYCANS
     Dosage: 250 G,1-3 TIMES A DAY
     Route: 065
     Dates: start: 202310, end: 202310
  61. ASCORBIC ACID\VITAMINS [Concomitant]
     Active Substance: ASCORBIC ACID\VITAMINS
     Indication: Product used for unknown indication
     Dosage: 250 MG, QD, AFTER DINNER
     Route: 048
     Dates: start: 20240315, end: 20240315
  62. ASCORBIC ACID\VITAMINS [Concomitant]
     Active Substance: ASCORBIC ACID\VITAMINS
     Dosage: 250 MG, TID, AFTER BREAKFAST, LUNCH AND DINNER
     Route: 048
     Dates: start: 20240316, end: 20240329
  63. ASCORBIC ACID\VITAMINS [Concomitant]
     Active Substance: ASCORBIC ACID\VITAMINS
     Dosage: 250 MG, BID, AFTER BREAKFAST AND LUNCH
     Route: 048
     Dates: start: 20240330, end: 20240330
  64. ASCORBIC ACID\VITAMINS [Concomitant]
     Active Substance: ASCORBIC ACID\VITAMINS
     Dosage: 1 GRAM, TID, AFTER EVERY MEALS
     Dates: start: 202404, end: 202407
  65. SODIUM PICOSULFATE [Concomitant]
     Active Substance: SODIUM PICOSULFATE
     Indication: Product used for unknown indication
     Dosage: 1 BOTTLE DAILY, QD
     Route: 065
     Dates: start: 20240316
  66. SODIUM PICOSULFATE [Concomitant]
     Active Substance: SODIUM PICOSULFATE
     Dosage: 1 BOTTLE DAILY, QD
     Route: 065
     Dates: start: 20240327
  67. SODIUM PICOSULFATE [Concomitant]
     Active Substance: SODIUM PICOSULFATE
     Dosage: 1 BOTTLE DAILY, QD
     Route: 065
     Dates: start: 20240320
  68. SODIUM PICOSULFATE [Concomitant]
     Active Substance: SODIUM PICOSULFATE
     Dosage: 5 UNK
     Route: 065
     Dates: start: 202308, end: 202308
  69. SODIUM PICOSULFATE [Concomitant]
     Active Substance: SODIUM PICOSULFATE
     Dosage: 5 UNK
     Route: 065
     Dates: start: 202310, end: 202310
  70. SODIUM PICOSULFATE [Concomitant]
     Active Substance: SODIUM PICOSULFATE
     Dosage: 5 VIALS, 1 DROP PER DOSE
     Route: 065
     Dates: start: 202312, end: 202312
  71. SODIUM PICOSULFATE [Concomitant]
     Active Substance: SODIUM PICOSULFATE
     Dosage: 5 VIALS, 1 DROP PER DOSE
     Route: 065
     Dates: start: 202404, end: 202404
  72. SODIUM PICOSULFATE [Concomitant]
     Active Substance: SODIUM PICOSULFATE
     Dosage: 4 VIALS, 1 DROP PER DOSE
     Route: 065
     Dates: start: 202405, end: 202405
  73. SODIUM PICOSULFATE [Concomitant]
     Active Substance: SODIUM PICOSULFATE
     Dosage: 4 VIALS, 1 DROP PER DOSE
     Route: 065
     Dates: start: 202406, end: 202406
  74. KETOPROFEN [Concomitant]
     Active Substance: KETOPROFEN
     Indication: Product used for unknown indication
     Dosage: 2 BAGS DAILY, QD
     Route: 062
     Dates: start: 20240316
  75. KETOPROFEN [Concomitant]
     Active Substance: KETOPROFEN
     Dosage: 2 BAGS DAILY, QD
     Route: 062
     Dates: start: 20240327
  76. KETOPROFEN [Concomitant]
     Active Substance: KETOPROFEN
     Dosage: 2 BAGS DAILY, QD
     Route: 062
     Dates: start: 20240320
  77. KETOPROFEN [Concomitant]
     Active Substance: KETOPROFEN
     Dosage: UNK, QD
     Route: 062
     Dates: start: 202406, end: 202406
  78. NAFAMOSTAT [Concomitant]
     Active Substance: NAFAMOSTAT
     Indication: Gastrointestinal haemorrhage
     Dosage: 120 MICROGRAM, 3 TIMES/WK
     Route: 041
     Dates: start: 20240313
  79. KAYEXALATE [Concomitant]
     Active Substance: SODIUM POLYSTYRENE SULFONATE
     Indication: Product used for unknown indication
     Dosage: 6.54 G, QD, AFTER DINNER
     Route: 048
     Dates: start: 202308, end: 202308
  80. KAYEXALATE [Concomitant]
     Active Substance: SODIUM POLYSTYRENE SULFONATE
     Dosage: 6.54 G, QD, AFTER DINNER
     Route: 048
     Dates: start: 202310, end: 202310
  81. KAYEXALATE [Concomitant]
     Active Substance: SODIUM POLYSTYRENE SULFONATE
     Dosage: 6.54 G, QD, AFTER DINNER
     Route: 048
     Dates: start: 202311, end: 202311
  82. KAYEXALATE [Concomitant]
     Active Substance: SODIUM POLYSTYRENE SULFONATE
     Dosage: 6.54 G, QD, AFTER DINNER
     Route: 048
     Dates: start: 202404, end: 202405
  83. RENAGEL [Concomitant]
     Active Substance: SEVELAMER HYDROCHLORIDE
     Indication: Product used for unknown indication
     Dosage: 4 DF, TID, BEFORE EVERY MEAL
     Route: 048
     Dates: start: 202308, end: 202308
  84. POLAPREZINC [Concomitant]
     Active Substance: POLAPREZINC
     Indication: Product used for unknown indication
     Dosage: 1 DF, BID, AFTER LUNCH AND BEFORE BEDTIME
     Route: 048
     Dates: start: 202308, end: 202403
  85. POLAPREZINC [Concomitant]
     Active Substance: POLAPREZINC
     Dosage: 1 DF, BID, AFTER LUNCH AND BEFORE BEDTIME
     Route: 048
     Dates: start: 202404, end: 202407
  86. CEFACLOR [Concomitant]
     Active Substance: CEFACLOR
     Indication: Product used for unknown indication
     Dosage: 2 DF, QD, AFTER LUNCH
     Route: 048
     Dates: start: 202310, end: 202310
  87. KETOPROFEN [Concomitant]
     Active Substance: KETOPROFEN
     Indication: Product used for unknown indication
     Dosage: UNK, QD
     Route: 062
     Dates: start: 202308, end: 202402
  88. KETOPROFEN [Concomitant]
     Active Substance: KETOPROFEN
     Dosage: UNK, QD
     Route: 062
     Dates: start: 202404, end: 202405
  89. KETOTIFEN [Concomitant]
     Active Substance: KETOTIFEN
     Indication: Product used for unknown indication
     Dosage: 4 BOTTLES, 1~2 DROPS PER DOSE
     Route: 047
     Dates: start: 202405, end: 202405
  90. ROCALTROL [Concomitant]
     Active Substance: CALCITRIOL
     Indication: Product used for unknown indication
     Dosage: 1 DF
     Route: 042
     Dates: start: 202308, end: 202312
  91. CYANOCOBALAMIN\PYRIDOXINE HYDROCHLORIDE\THIAMINE [Concomitant]
     Active Substance: CYANOCOBALAMIN\PYRIDOXINE HYDROCHLORIDE\THIAMINE
     Indication: Product used for unknown indication
     Dosage: 1 DOSAGE FORM
     Route: 042
     Dates: start: 202402, end: 202402
  92. DEXTROSE [Concomitant]
     Active Substance: DEXTROSE\DEXTROSE MONOHYDRATE
     Indication: Product used for unknown indication
     Dosage: 1 DOSAGE FORM
     Route: 065
     Dates: start: 202309, end: 202310
  93. AMINO ACIDS\ELECTROLYTES NOS [Concomitant]
     Active Substance: AMINO ACIDS\ELECTROLYTES NOS
     Indication: Product used for unknown indication
     Dosage: 1 DOSAGE FORM
     Route: 065
     Dates: start: 202402, end: 202402
  94. LEVOCARNITINE [Concomitant]
     Active Substance: LEVOCARNITINE
     Indication: Carnitine decreased
     Dosage: 1000 MG
     Route: 042
     Dates: start: 20200718
  95. CEFAZOLIN SODIUM [Concomitant]
     Active Substance: CEFAZOLIN SODIUM
     Indication: Product used for unknown indication
     Dosage: 1 DOSAGE FORM
     Route: 065
     Dates: start: 202309, end: 202310

REACTIONS (1)
  - Aplasia pure red cell [Not Recovered/Not Resolved]

NARRATIVE: CASE EVENT DATE: 20240125
